FAERS Safety Report 25373688 (Version 2)
Quarter: 2025Q2

REPORT INFORMATION
  Report Type: Spontaneous
  Country: CA (occurrence: CA)
  Receive Date: 20250529
  Receipt Date: 20250624
  Transmission Date: 20250717
  Serious: Yes (Hospitalization, Other)
  Sender: CELLTRION
  Company Number: CA-PFIZER INC-202500107295

PATIENT

DRUGS (1)
  1. INFLECTRA [Suspect]
     Active Substance: INFLIXIMAB-DYYB
     Indication: Crohn^s disease
     Route: 042
     Dates: start: 20250325

REACTIONS (3)
  - Spinal cord disorder [Recovering/Resolving]
  - Phlebitis [Unknown]
  - Rectal abscess [Unknown]

NARRATIVE: CASE EVENT DATE: 20250101
